FAERS Safety Report 21531592 (Version 2)
Quarter: 2022Q4

REPORT INFORMATION
  Report Type: Report from Study
  Country: FR (occurrence: FR)
  Receive Date: 20221031
  Receipt Date: 20221117
  Transmission Date: 20230113
  Serious: Yes (Death, Hospitalization, Other)
  Sender: FDA-Public Use
  Company Number: FR-BRISTOL-MYERS SQUIBB COMPANY-2022-096092

PATIENT
  Age: 60 Year
  Sex: Male
  Weight: 74 kg

DRUGS (6)
  1. NIVOLUMAB [Suspect]
     Active Substance: NIVOLUMAB
     Indication: Squamous cell carcinoma of head and neck
     Dosage: DAY 10, DAY 14
     Route: 065
     Dates: start: 20220225
  2. NIVOLUMAB [Suspect]
     Active Substance: NIVOLUMAB
     Dosage: CYCLE 1, DAY 1
     Route: 065
     Dates: start: 20220308
  3. NIVOLUMAB [Suspect]
     Active Substance: NIVOLUMAB
     Dosage: CYCLE 2, DAY 22
     Route: 065
     Dates: start: 20220406, end: 20220523
  4. NIVOLUMAB [Suspect]
     Active Substance: NIVOLUMAB
     Route: 065
     Dates: start: 20220531, end: 20220628
  5. CISPLATIN [Suspect]
     Active Substance: CISPLATIN
     Indication: Squamous cell carcinoma of head and neck
     Dosage: CYCLE 1, DAY 1
     Route: 065
     Dates: start: 20220308
  6. CISPLATIN [Suspect]
     Active Substance: CISPLATIN
     Dosage: CYCLE 2, DAY 22
     Route: 065
     Dates: start: 20220406

REACTIONS (2)
  - Acute kidney injury [Fatal]
  - Cardiac dysfunction [Fatal]

NARRATIVE: CASE EVENT DATE: 20220520
